FAERS Safety Report 8033439-6 (Version None)
Quarter: 2011Q4

REPORT INFORMATION
  Report Type: 
  Country: None (occurrence: None)
  Receive Date: 20111202
  Receipt Date: 20110216
  Transmission Date: 20120403
  Serious: Yes (Other)
  Sender: FDA-Public Use
  Company Number: WAES 0810USA04875

PATIENT
  Age: 64 Year
  Sex: Female
  Weight: 72.5755 kg

DRUGS (7)
  1. ADVAIR DISKUS 100/50 [Concomitant]
  2. GLYBURIDE [Concomitant]
  3. METFORMIN HCL [Concomitant]
  4. NITROGLYCERIN [Concomitant]
  5. FOSAMAX [Suspect]
     Indication: OSTEOPOROSIS
     Dosage: 10 MG/QID/PO 70 MG/WKY/PO
     Route: 048
     Dates: start: 20020407, end: 20040625
  6. FOSAMAX [Suspect]
     Indication: OSTEOPOROSIS
     Dosage: 10 MG/QID/PO 70 MG/WKY/PO
     Route: 048
     Dates: start: 20040805, end: 20080103
  7. LIPITOR [Concomitant]

REACTIONS (39)
  - ANGIOPATHY [None]
  - BLOOD TRIGLYCERIDES INCREASED [None]
  - SINUS HEADACHE [None]
  - ABDOMINAL DISTENSION [None]
  - GASTROINTESTINAL DISORDER [None]
  - VOMITING [None]
  - WEIGHT DECREASED [None]
  - WEIGHT [None]
  - RENAL CYST [None]
  - ANXIETY [None]
  - TREMOR [None]
  - TOOTH DISORDER [None]
  - RIB FRACTURE [None]
  - TONGUE ULCERATION [None]
  - CATARACT [None]
  - DIPLOPIA [None]
  - TONSILLAR DISORDER [None]
  - PHARYNGITIS [None]
  - BONE DISORDER [None]
  - EXOSTOSIS [None]
  - FRACTURE [None]
  - ASTHENIA [None]
  - INSOMNIA [None]
  - RESORPTION BONE INCREASED [None]
  - BRONCHITIS [None]
  - DIARRHOEA [None]
  - HEPATIC STEATOSIS [None]
  - ACTINOMYCOSIS [None]
  - ARTHRITIS [None]
  - OTITIS MEDIA [None]
  - DIZZINESS [None]
  - GINGIVITIS [None]
  - OSTEONECROSIS OF JAW [None]
  - ANAEMIA [None]
  - DYSPNOEA EXERTIONAL [None]
  - FALL [None]
  - IMPAIRED HEALING [None]
  - FATIGUE [None]
  - ACUTE SINUSITIS [None]
